FAERS Safety Report 12903494 (Version 2)
Quarter: 2016Q4

REPORT INFORMATION
  Report Type: Spontaneous
  Country: US (occurrence: US)
  Receive Date: 20161102
  Receipt Date: 20161229
  Transmission Date: 20170207
  Serious: No
  Sender: FDA-Public Use
  Company Number: US-CELGENEUS-USA-2016108276

PATIENT
  Sex: Female
  Weight: 56.75 kg

DRUGS (7)
  1. REVLIMID [Suspect]
     Active Substance: LENALIDOMIDE
     Indication: PLASMA CELL MYELOMA
     Dosage: 25 MILLIGRAM
     Route: 048
     Dates: start: 201212
  2. REVLIMID [Suspect]
     Active Substance: LENALIDOMIDE
     Dosage: 5-15MG
     Route: 048
     Dates: start: 201302
  3. BACTRIM [Concomitant]
     Active Substance: SULFAMETHOXAZOLE\TRIMETHOPRIM
     Indication: CYSTITIS
     Route: 065
     Dates: start: 20161213
  4. REVLIMID [Suspect]
     Active Substance: LENALIDOMIDE
     Dosage: 25 MILLIGRAM
     Route: 048
     Dates: start: 20161027
  5. DEXAMETHASONE. [Concomitant]
     Active Substance: DEXAMETHASONE
     Indication: CATARACT
     Dosage: 2.8571 MILLIGRAM
     Route: 065
  6. REVLIMID [Suspect]
     Active Substance: LENALIDOMIDE
     Dosage: 10-25MG
     Route: 048
     Dates: start: 201401
  7. DEXAMETHASONE. [Concomitant]
     Active Substance: DEXAMETHASONE
     Dosage: 1.1429 MILLIGRAM
     Route: 065

REACTIONS (3)
  - Back pain [Unknown]
  - Intervertebral disc protrusion [Unknown]
  - Scoliosis [Unknown]
